FAERS Safety Report 11088616 (Version 3)
Quarter: 2016Q1

REPORT INFORMATION
  Report Type: Spontaneous
  Country: IR (occurrence: IR)
  Receive Date: 20150504
  Receipt Date: 20160114
  Transmission Date: 20160525
  Serious: Yes (Death, Hospitalization)
  Sender: FDA-Public Use
  Company Number: IR-SA-2015SA056466

PATIENT
  Age: 67 Year
  Sex: Female

DRUGS (2)
  1. ELOXATIN [Suspect]
     Active Substance: OXALIPLATIN
     Indication: COLORECTAL CANCER
     Dosage: ROUTE-INF.?STRENGTH: 50 MG
     Dates: end: 20150424
  2. ELOXATIN [Suspect]
     Active Substance: OXALIPLATIN
     Indication: COLORECTAL CANCER
     Dosage: ROUTE-INF.?STRENGTH: 50 MG

REACTIONS (4)
  - Metastasis [Fatal]
  - Pyrexia [Recovered/Resolved]
  - Diarrhoea [Recovered/Resolved]
  - Febrile neutropenia [Recovered/Resolved]

NARRATIVE: CASE EVENT DATE: 20150424
